FAERS Safety Report 9112608 (Version 2)
Quarter: 2013Q1

REPORT INFORMATION
  Report Type: Report from Study
  Country: NL (occurrence: NL)
  Receive Date: 20130116
  Receipt Date: 20130116
  Transmission Date: 20140127
  Serious: Yes (Death)
  Sender: FDA-Public Use
  Company Number: NL-CELGENEUS-114-21880-13010929

PATIENT
  Age: 73 Year
  Sex: Male
  Weight: 88 kg

DRUGS (10)
  1. REVLIMID [Suspect]
     Indication: ACUTE MYELOID LEUKAEMIA
     Route: 041
     Dates: start: 20121012, end: 20121031
  2. REVLIMID [Suspect]
     Route: 048
     Dates: start: 20121129, end: 20121218
  3. DAUNOMYCIN [Suspect]
     Indication: ACUTE MYELOID LEUKAEMIA
     Route: 041
     Dates: start: 20121012, end: 20121018
  4. CYTARABINE [Suspect]
     Indication: ACUTE MYELOID LEUKAEMIA
     Route: 041
     Dates: start: 20121012, end: 20121014
  5. CYTARABINE [Suspect]
     Route: 041
     Dates: start: 20121129, end: 20121204
  6. PIPERACILIN/TAZOBACTAM [Concomitant]
     Indication: INFECTION
     Dosage: 4000/500MG
     Route: 041
     Dates: start: 20121212, end: 20121218
  7. ACICLOVIR [Concomitant]
     Indication: HERPES VIRUS INFECTION
     Dosage: 1050 MILLIGRAM
     Route: 041
     Dates: start: 20121214, end: 20121218
  8. CIPROXIN [Concomitant]
     Indication: PRODUCT USED FOR UNKNOWN INDICATION
     Dosage: 1000 MILLIGRAM
     Route: 041
     Dates: start: 20121217, end: 20121218
  9. FLUCONAZOL [Concomitant]
     Indication: PRODUCT USED FOR UNKNOWN INDICATION
     Dosage: 200 MILLIGRAM
     Route: 048
     Dates: start: 20121217, end: 20121218
  10. VANCOMYCIN [Concomitant]
     Indication: PRODUCT USED FOR UNKNOWN INDICATION
     Dosage: 1000 MILLIGRAM
     Route: 041
     Dates: start: 20121217, end: 20121218

REACTIONS (1)
  - Sepsis [Fatal]
